FAERS Safety Report 8470806-0 (Version None)
Quarter: 2012Q2

REPORT INFORMATION
  Report Type: 
  Country: None (occurrence: None)
  Receive Date: 20120627
  Receipt Date: 20120607
  Transmission Date: 20120825
  Serious: No
  Sender: FDA-Public Use
  Company Number: US-ASTRAZENECA-2011SE41454

PATIENT
  Age: 62 Year
  Sex: Female
  Weight: 83.9 kg

DRUGS (51)
  1. NEXIUM [Suspect]
     Indication: GASTROOESOPHAGEAL REFLUX DISEASE
     Route: 048
     Dates: start: 20010101
  2. ATENOLOL [Concomitant]
     Indication: CARDIAC DISORDER
  3. AVAPRO [Concomitant]
     Dates: start: 20100731
  4. PRILOSEC [Concomitant]
     Indication: GASTROOESOPHAGEAL REFLUX DISEASE
  5. PRILOSEC [Concomitant]
     Dates: start: 20010724
  6. CELEXA [Concomitant]
     Dates: start: 20100731
  7. CENESTIN [Concomitant]
     Indication: HORMONE THERAPY
  8. PHENERGAN [Concomitant]
  9. ATENOLOL [Concomitant]
     Dosage: 50MG, TK ONE T PO D
     Route: 048
     Dates: start: 20061130
  10. ATENOLOL [Concomitant]
     Dates: start: 20100731
  11. ZOCOR [Concomitant]
     Indication: BLOOD CHOLESTEROL
  12. ZOCOR [Concomitant]
     Dates: start: 20100731
  13. CELEXA [Concomitant]
     Dates: start: 20100731
  14. DIOVAN [Concomitant]
     Indication: BLOOD PRESSURE
  15. FOSAMOX [Concomitant]
     Indication: OSTEOPOROSIS
  16. PCE [Concomitant]
  17. ESTROPIPATE [Concomitant]
     Dosage: 1.5MG (1.25 MG) ,TK ONE T PO QD
     Route: 048
     Dates: start: 20061130
  18. NEXIUM [Suspect]
     Dosage: 1/DAY, TOOK 2/DAY FROM FEBRUARY 2006 TO DECEMBER 2006
     Route: 048
     Dates: start: 20010401
  19. NEXIUM [Suspect]
     Route: 048
     Dates: start: 20100731
  20. EFFEXOR XR [Concomitant]
     Indication: DEPRESSION
     Dates: start: 20011219
  21. NEXIUM [Suspect]
     Route: 048
  22. PLAVIX [Concomitant]
     Indication: PERIPHERAL VASCULAR DISORDER
     Dates: start: 20050101
  23. CELEXA [Concomitant]
     Indication: DEPRESSION
     Dates: start: 20050101
  24. CELEXA [Concomitant]
     Indication: ANXIETY
     Dates: start: 20050101
  25. CENESTIN [Concomitant]
     Dates: end: 20060101
  26. PAXIL [Concomitant]
     Indication: DEPRESSION
     Dates: start: 20011218
  27. UROMAR [Concomitant]
     Indication: BLADDER SPASM
  28. NEXIUM [Suspect]
     Dosage: 1/DAY, TOOK 2/DAY FROM FEBRUARY 2006 TO DECEMBER 2006
     Route: 048
     Dates: start: 20010401
  29. NEXIUM [Suspect]
     Route: 048
     Dates: start: 20011218
  30. HYDROCHLOROTHIZIDE [Concomitant]
     Indication: CARDIAC DISORDER
  31. PRILOSEC [Concomitant]
     Dates: start: 20010324
  32. PRILOSEC [Concomitant]
     Dates: start: 20010724
  33. PREMARIN [Concomitant]
     Indication: HORMONE THERAPY
  34. EFFEXOR XR [Concomitant]
     Dates: end: 20050101
  35. BENTYL [Concomitant]
  36. METAMUCIL-2 [Concomitant]
  37. NEXIUM [Suspect]
     Route: 048
  38. PLAVIX [Concomitant]
     Indication: CARDIAC DISORDER
     Dates: start: 20050101
  39. NORVASC [Concomitant]
     Indication: BLOOD PRESSURE
  40. PAXIL [Concomitant]
  41. CEFZIL [Concomitant]
  42. NEXIUM [Suspect]
     Indication: CHEST PAIN
     Route: 048
     Dates: start: 20010101
  43. NEXIUM [Suspect]
     Route: 048
     Dates: start: 20100731
  44. AVAPRO [Concomitant]
     Indication: CARDIAC DISORDER
     Dosage: 30 MG
  45. NEXIUM [Suspect]
     Route: 048
     Dates: start: 20011218
  46. HYDROCHLOROTHIZIDE [Concomitant]
     Dates: start: 20100731
  47. PRILOSEC [Concomitant]
     Indication: CHEST PAIN
  48. PRILOSEC [Concomitant]
     Dates: start: 20010324
  49. LEVOTHYROXINE [Concomitant]
     Indication: HYPOTHYROIDISM
     Dosage: 80 TO 88 MCG
  50. ASPIRIN [Concomitant]
     Indication: ANTICOAGULANT THERAPY
  51. NITROGLYCERIN [Concomitant]
     Indication: OESOPHAGEAL SPASM

REACTIONS (14)
  - FALL [None]
  - MUSCULOSKELETAL DISCOMFORT [None]
  - DEPRESSION [None]
  - OSTEOPENIA [None]
  - OSTEOPOROSIS [None]
  - LIMB DISCOMFORT [None]
  - HYPOTHYROIDISM [None]
  - NECK PAIN [None]
  - ABDOMINAL PAIN LOWER [None]
  - ABDOMINAL PAIN [None]
  - BONE DENSITY DECREASED [None]
  - CHEST PAIN [None]
  - INFLUENZA [None]
  - PERIPHERAL VASCULAR DISORDER [None]
